FAERS Safety Report 7107732-5 (Version None)
Quarter: 2010Q4

REPORT INFORMATION
  Report Type: 
  Country: None (occurrence: None)
  Receive Date: 20101117
  Receipt Date: 20101109
  Transmission Date: 20110411
  Serious: Yes (Death, Hospitalization, Other)
  Sender: FDA-Public Use
  Company Number: DE-AMGEN GMBH-QUU444781

PATIENT

DRUGS (3)
  1. VECTIBIX [Suspect]
     Indication: COLORECTAL CANCER
     Dosage: 400 MG, Q2WK
     Route: 042
     Dates: start: 20100610, end: 20100930
  2. NOVALGIN                           /00169801/ [Concomitant]
     Indication: PAIN
     Dosage: 500 MG, PRN
     Route: 048
     Dates: start: 20100916, end: 20101011
  3. METAMIZOL                          /06276702/ [Concomitant]
     Indication: PAIN
     Dosage: UNK
     Dates: start: 20100916

REACTIONS (4)
  - AGRANULOCYTOSIS [None]
  - COLON CANCER METASTATIC [None]
  - LEUKOPENIA [None]
  - PAIN [None]
